FAERS Safety Report 10200607 (Version 2)
Quarter: 2014Q2

REPORT INFORMATION
  Report Type: Spontaneous
  Country: US (occurrence: US)
  Receive Date: 20140528
  Receipt Date: 20140620
  Transmission Date: 20141212
  Serious: Yes (Other)
  Sender: FDA-Public Use
  Company Number: US-ACCORD-023851

PATIENT
  Age: 9 Year
  Sex: Female

DRUGS (7)
  1. FOLIC ACID [Concomitant]
     Indication: PRODUCT USED FOR UNKNOWN INDICATION
     Dosage: FOLIC ACID COMPOUNDED, DURATION- 3-4 YRS
     Route: 048
  2. MIRALAX [Concomitant]
     Indication: PRODUCT USED FOR UNKNOWN INDICATION
     Dosage: DOSAGE-POWDER, ROUTE-PO/NG, DURATION- 2+YRS.
     Route: 050
  3. CALCIUM CARBONATE [Concomitant]
     Indication: PRODUCT USED FOR UNKNOWN INDICATION
     Dosage: DOSAGE FORM-SOL, DOSE-1250 MG/5 ML, DAILY DOSE-1250 MG, ROUTE-PO/NG, DURATION-2+ YRS
     Route: 050
  4. TACROLIMUS ACCORD [Suspect]
     Indication: RENAL TRANSPLANT
     Dosage: STRENGTH-5 MG, PRESUMABLY 100,?ROUTE- NG, PACKAGED-BOTTLE 100
     Route: 050
     Dates: start: 201403, end: 20140517
  5. IRON [Concomitant]
     Indication: PRODUCT USED FOR UNKNOWN INDICATION
     Dosage: DOSE UNIT-220MG (5 ML), DAILY DOSE-176 MG(4 ML), DOSAGE FORM-SOL, ROUTE-PO/NG
     Route: 050
  6. PREDNISOLONE [Concomitant]
     Indication: RENAL TRANSPLANT
     Dosage: DOSAGE FORM-SOL?DAILY DOSE- 1 ML (3 MG), DOSE UNIT 15 MG/ML, ROUTE-PO/NG
     Route: 050
  7. ERGOCALCIFEROL [Concomitant]
     Indication: PRODUCT USED FOR UNKNOWN INDICATION
     Dosage: DAILY DOSE-200 UNITS (25 ML), DOSE UNIT- 800 UNITS/ML. DOSAGE FORM-SOL, ROUTE-PO/NG
     Route: 050

REACTIONS (3)
  - Off label use [Unknown]
  - Product substitution issue [Unknown]
  - Drug level decreased [Unknown]
